FAERS Safety Report 16386669 (Version 2)
Quarter: 2019Q2

REPORT INFORMATION
  Report Type: Report from Study
  Country: None (occurrence: CH)
  Receive Date: 20190604
  Receipt Date: 20190618
  Transmission Date: 20190711
  Serious: Yes (Other)
  Sender: FDA-Public Use
  Company Number: CH-ABBVIE-19S-151-2806049-00

PATIENT
  Sex: Female

DRUGS (3)
  1. DUODOPA [Suspect]
     Active Substance: CARBIDOPA\LEVODOPA
     Indication: PARKINSON^S DISEASE
     Route: 050
     Dates: start: 20130226, end: 20150609
  2. DUODOPA [Suspect]
     Active Substance: CARBIDOPA\LEVODOPA
     Dosage: MD:0 ML;CRD: 3.4 ML/H;CRN: 3.4 ML/H;ED: 1.3 ML
     Route: 050
     Dates: start: 20150609, end: 20190531
  3. DUODOPA [Suspect]
     Active Substance: CARBIDOPA\LEVODOPA
     Dosage: MD: 2.7 ML; CRD: 3.1 ML/H;CRN: 2.2 ML/H;ED: 3 ML 24 H THERAPY
     Route: 050
     Dates: start: 20190531

REACTIONS (1)
  - Locked-in syndrome [Not Recovered/Not Resolved]
